FAERS Safety Report 17165021 (Version 1)
Quarter: 2019Q4

REPORT INFORMATION
  Report Type: Report from Study
  Country: FR (occurrence: FR)
  Receive Date: 20191217
  Receipt Date: 20191217
  Transmission Date: 20200122
  Serious: Yes (Hospitalization)
  Sender: FDA-Public Use
  Company Number: FR-AMGEN-FRACT2019206355

PATIENT
  Age: 71 Year
  Sex: Male
  Weight: 69 kg

DRUGS (10)
  1. 5 FU [Suspect]
     Active Substance: FLUOROURACIL
     Dosage: 760 MILLIGRAM
     Route: 040
     Dates: start: 20191011
  2. DIFFU K [Concomitant]
     Active Substance: POTASSIUM CHLORIDE
     Indication: BLOOD POTASSIUM ABNORMAL
     Dosage: 12 GRAM
     Route: 048
  3. 5 FU [Suspect]
     Active Substance: FLUOROURACIL
     Indication: COLORECTAL CANCER
     Dosage: 4600 MILLIGRAM
     Route: 042
     Dates: start: 20191011
  4. OXALIPLATINE [Suspect]
     Active Substance: OXALIPLATIN
     Indication: COLORECTAL CANCER
     Dosage: 160 MILLIGRAM
     Route: 042
     Dates: start: 20191011
  5. ATORVASTATINE [ATORVASTATIN] [Concomitant]
     Active Substance: ATORVASTATIN
     Indication: HYPERCHOLESTEROLAEMIA
     Dosage: 10 MILLIGRAM
     Route: 048
  6. FUROSEMIDE. [Concomitant]
     Active Substance: FUROSEMIDE
     Indication: DIURETIC THERAPY
     Dosage: 80 MILLIGRAM
     Route: 048
  7. ELVORINE [Suspect]
     Active Substance: LEUCOVORIN CALCIUM
     Indication: COLORECTAL CANCER
     Dosage: 378 MILLIGRAM
     Route: 042
     Dates: start: 20191011
  8. ASPEGIC [ACETYLSALICYLIC ACID] [Concomitant]
     Active Substance: ASPIRIN
     Indication: ANTICOAGULANT THERAPY
     Dosage: 75 MILLIGRAM
     Route: 048
  9. PANITUMUMAB [Suspect]
     Active Substance: PANITUMUMAB
     Indication: COLORECTAL CANCER
     Dosage: 420 MILLIGRAM
     Route: 042
     Dates: start: 20191011
  10. IRINOTECAN [Suspect]
     Active Substance: IRINOTECAN
     Indication: COLORECTAL CANCER
     Dosage: 280 MILLIGRAM
     Route: 042
     Dates: start: 20191011

REACTIONS (2)
  - Dehydration [Not Recovered/Not Resolved]
  - General physical condition abnormal [Not Recovered/Not Resolved]

NARRATIVE: CASE EVENT DATE: 20191204
